FAERS Safety Report 9850834 (Version 2)
Quarter: 2014Q1

REPORT INFORMATION
  Report Type: Spontaneous
  Country: US (occurrence: US)
  Receive Date: 20140128
  Receipt Date: 20140321
  Transmission Date: 20141002
  Serious: Yes (Death, Life-Threatening, Hospitalization, Disabling, Other)
  Sender: FDA-Public Use
  Company Number: US-MERCK-1401USA012745

PATIENT
  Sex: Male
  Weight: 103.4 kg

DRUGS (10)
  1. JANUVIA [Suspect]
     Indication: TYPE 2 DIABETES MELLITUS
     Dosage: 100 MG, QD
     Route: 048
     Dates: start: 20120330, end: 20130404
  2. GLIPIZIDE [Concomitant]
     Indication: TYPE 2 DIABETES MELLITUS
     Dosage: 10 MG, BID
     Route: 048
  3. METFORMIN [Concomitant]
     Indication: TYPE 2 DIABETES MELLITUS
     Dosage: 500-1000 MG, BID
     Route: 048
     Dates: start: 201103
  4. LISINOPRIL [Concomitant]
     Indication: ESSENTIAL HYPERTENSION
     Dosage: 20 MG, QD
     Route: 048
  5. CRESTOR [Concomitant]
     Indication: HYPERCHOLESTEROLAEMIA
  6. PRILOSEC [Concomitant]
     Dosage: 20 MG,QD-BID
     Route: 048
  7. OMEGA-3 MARINE TRIGLYCERIDES [Concomitant]
     Dosage: 40 MG, QD
     Route: 048
  8. VIAGRA [Concomitant]
     Dosage: 50-100 MG AS DIRECTED
     Route: 048
  9. NIASPAN [Concomitant]
     Dosage: 500 MG, QD-BID
     Route: 048
  10. VITAMINS (UNSPECIFIED) [Concomitant]
     Dosage: 1 QD
     Route: 048

REACTIONS (40)
  - Pancreatic carcinoma [Fatal]
  - Cerebrovascular accident [Fatal]
  - Metastases to central nervous system [Unknown]
  - Acute myocardial infarction [Unknown]
  - Metastases to liver [Unknown]
  - Lymphadenopathy [Unknown]
  - Renal embolism [Unknown]
  - Splenic vein thrombosis [Unknown]
  - Splenic infarction [Unknown]
  - Mental status changes [Unknown]
  - Pneumonia [Unknown]
  - Sepsis [Unknown]
  - Renal failure acute [Unknown]
  - Splenomegaly [Unknown]
  - Portal vein dilatation [Unknown]
  - Spigelian hernia [Unknown]
  - Hernia obstructive [Unknown]
  - Oesophageal variceal ligation [Unknown]
  - Varices oesophageal [Unknown]
  - Portal hypertensive gastropathy [Unknown]
  - Hypercoagulation [Unknown]
  - Stress [Unknown]
  - Hepatic lesion [Unknown]
  - Gastrointestinal disorder [Unknown]
  - Haematochezia [Unknown]
  - Haemoglobin decreased [Unknown]
  - Haemoptysis [Unknown]
  - Vasodilatation [Unknown]
  - Anorectal varices [Unknown]
  - Haemorrhoids [Unknown]
  - Angiodysplasia [Unknown]
  - Oedema peripheral [Unknown]
  - Infected cyst [Unknown]
  - Cyst removal [Unknown]
  - Pyrexia [Recovered/Resolved]
  - Kidney fibrosis [Unknown]
  - Renal cyst [Unknown]
  - Hypotension [Unknown]
  - Arthritis [Unknown]
  - Tobacco user [Unknown]
